FAERS Safety Report 5833451-9 (Version None)
Quarter: 2008Q3

REPORT INFORMATION
  Report Type: 
  Country: None (occurrence: None)
  Receive Date: 20080805
  Receipt Date: 20080801
  Transmission Date: 20090109
  Serious: Yes (Hospitalization)
  Sender: FDA-Public Use
  Company Number: FR-WYE-G01951908

PATIENT
  Sex: Male

DRUGS (1)
  1. ADVIL [Suspect]
     Indication: OROPHARYNGEAL PAIN
     Dosage: 6 TABLETS IN 3 DAYS
     Route: 048
     Dates: start: 20080526, end: 20080528

REACTIONS (3)
  - BLOOD CREATINE PHOSPHOKINASE INCREASED [None]
  - PANCREATITIS ACUTE [None]
  - PERITONEAL EFFUSION [None]
